FAERS Safety Report 10945721 (Version 2)
Quarter: 2015Q2

REPORT INFORMATION
  Report Type: Report from Study
  Country: US (occurrence: US)
  Receive Date: 20150323
  Receipt Date: 20150406
  Transmission Date: 20150821
  Serious: Yes (Other)
  Sender: FDA-Public Use
  Company Number: US-SA-2015SA034819

PATIENT
  Age: 46 Year
  Sex: Male

DRUGS (1)
  1. AUBAGIO [Suspect]
     Active Substance: TERIFLUNOMIDE
     Indication: MULTIPLE SCLEROSIS
     Route: 048
     Dates: start: 20121205

REACTIONS (5)
  - Pain [Unknown]
  - Ligament rupture [Unknown]
  - Tendon rupture [Unknown]
  - Road traffic accident [Unknown]
  - Joint dislocation [Unknown]

NARRATIVE: CASE EVENT DATE: 20150222
